FAERS Safety Report 20547278 (Version 1)
Quarter: 2022Q1

REPORT INFORMATION
  Report Type: Spontaneous
  Country: US (occurrence: None)
  Receive Date: 20220303
  Receipt Date: 20220303
  Transmission Date: 20220423
  Serious: Yes (Other)
  Sender: FDA-Public Use
  Company Number: None

PATIENT
  Sex: Female

DRUGS (14)
  1. CIMZIA [Suspect]
     Active Substance: CERTOLIZUMAB PEGOL
  2. ALPRAZOLAM [Concomitant]
  3. CELEBRIX  CAP [Concomitant]
  4. CIMZIA STARTER KIT [Concomitant]
  5. COREG TAB [Concomitant]
  6. LEVOTHYROXIN TAB [Concomitant]
  7. LEXAPRO TAB [Concomitant]
  8. LIPITOR TAB [Concomitant]
  9. LISINOPRIL [Concomitant]
     Active Substance: LISINOPRIL
  10. OMEPRAZOLE [Concomitant]
  11. OMEPRAZOLE CAP [Concomitant]
  12. OMEPRAZOLE CAP [Concomitant]
  13. PLAVIX TAB [Concomitant]
  14. TOUJEO MAX INJ [Concomitant]

REACTIONS (4)
  - Condition aggravated [None]
  - Loss of personal independence in daily activities [None]
  - Intentional dose omission [None]
  - Pain [None]
